FAERS Safety Report 5123888-8 (Version None)
Quarter: 2006Q4

REPORT INFORMATION
  Report Type: 
  Country: None (occurrence: None)
  Receive Date: 20061010
  Receipt Date: 20060929
  Transmission Date: 20070319
  Serious: Yes (Hospitalization)
  Sender: FDA-Public Use
  Company Number: JP-JNJFOC-20060905424

PATIENT
  Sex: Female

DRUGS (8)
  1. DUROTEP [Suspect]
     Route: 062
  2. DUROTEP [Suspect]
     Indication: DRUG USE FOR UNKNOWN INDICATION
     Route: 062
  3. LANSOPRAZOLE [Concomitant]
     Indication: OESOPHAGITIS
     Route: 048
  4. FIRSTCIN [Concomitant]
     Indication: DRUG USE FOR UNKNOWN INDICATION
     Route: 065
  5. ALOSENN [Concomitant]
     Indication: CONSTIPATION
     Route: 048
  6. DEPAS [Concomitant]
     Indication: RESTLESSNESS
     Route: 048
  7. TETRAMIDE [Concomitant]
     Indication: RESTLESSNESS
     Route: 048
  8. MAGNESIUM OXIDE [Concomitant]
     Indication: CONSTIPATION

REACTIONS (2)
  - APPLICATION SITE DERMATITIS [None]
  - RASH GENERALISED [None]
